FAERS Safety Report 18577753 (Version 3)
Quarter: 2021Q2

REPORT INFORMATION
  Report Type: Other
  Country: CA (occurrence: CA)
  Receive Date: 20201204
  Receipt Date: 20210517
  Transmission Date: 20210717
  Serious: Yes (Other)
  Sender: FDA-Public Use
  Company Number: CA-CELLTRION INC.-2020CA032898

PATIENT

DRUGS (14)
  1. ARAVA [Concomitant]
     Active Substance: LEFLUNOMIDE
  2. METHOTREXATE. [Suspect]
     Active Substance: METHOTREXATE
     Dosage: UNK
     Route: 048
  3. SULFASALAZINE. [Concomitant]
     Active Substance: SULFASALAZINE
     Dosage: UNK
     Route: 065
  4. RITUXIMAB (UNKNOWN) [Suspect]
     Active Substance: RITUXIMAB
     Indication: RHEUMATOID ARTHRITIS
     Route: 065
  5. HUMIRA [Concomitant]
     Active Substance: ADALIMUMAB
     Route: 065
  6. ENBREL [Suspect]
     Active Substance: ETANERCEPT
     Indication: PRODUCT USED FOR UNKNOWN INDICATION
     Route: 065
  7. METHOTREXATE. [Suspect]
     Active Substance: METHOTREXATE
     Indication: PRODUCT USED FOR UNKNOWN INDICATION
     Dosage: UNK
     Route: 065
  8. METHOTREXATE. [Suspect]
     Active Substance: METHOTREXATE
     Indication: PRODUCT USED FOR UNKNOWN INDICATION
     Route: 058
  9. GOLD [Concomitant]
     Active Substance: GOLD
  10. HYDROXYCHLOROQUINE SULFATE. [Concomitant]
     Active Substance: HYDROXYCHLOROQUINE SULFATE
  11. NAPROXEN. [Concomitant]
     Active Substance: NAPROXEN
     Dosage: 500 MILLIGRAM, 2 EVERY 1 DAYS
  12. UMECLIDINIUM BROMIDE;VILANTEROL [Concomitant]
     Active Substance: UMECLIDINIUM BROMIDE\VILANTEROL TRIFENATATE
  13. CITALOPRAM HYDROBROMIDE. [Concomitant]
     Active Substance: CITALOPRAM HYDROBROMIDE
     Dosage: 20 MG
     Route: 048
  14. PREDNISONE. [Concomitant]
     Active Substance: PREDNISONE
     Dosage: 5 MG
     Route: 048

REACTIONS (11)
  - Joint swelling [Unknown]
  - Nausea [Unknown]
  - Fracture [Unknown]
  - Therapeutic product effect decreased [Unknown]
  - Rheumatoid arthritis [Unknown]
  - Foot deformity [Unknown]
  - Grip strength decreased [Unknown]
  - Joint range of motion decreased [Unknown]
  - Drug ineffective [Unknown]
  - Arthropathy [Unknown]
  - Musculoskeletal stiffness [Unknown]
